FAERS Safety Report 7901837-4 (Version None)
Quarter: 2011Q4

REPORT INFORMATION
  Report Type: 
  Country: None (occurrence: None)
  Receive Date: 20111108
  Receipt Date: 20111030
  Transmission Date: 20120403
  Serious: Yes (Hospitalization)
  Sender: FDA-Public Use
  Company Number: NZ-B.I. PHARMACEUTICALS,INC./RIDGEFIELD-2011-EU-00104AU

PATIENT
  Sex: Female

DRUGS (5)
  1. LOSARTAN POTASSIUM [Concomitant]
     Dosage: 50 MG
     Route: 048
  2. DABIGATRAN [Suspect]
     Indication: ATRIAL FIBRILLATION
     Dosage: 300 MG
     Route: 048
     Dates: start: 20110714, end: 20110729
  3. SIMVASTATIN [Concomitant]
     Dosage: 20 MG
     Route: 048
  4. FUROSEMIDE [Concomitant]
     Dosage: 80 MG
     Route: 048
  5. METOPROLOL [Concomitant]
     Route: 048

REACTIONS (4)
  - MYALGIA [None]
  - CHEST PAIN [None]
  - ARTHRALGIA [None]
  - NAUSEA [None]
